FAERS Safety Report 7663403-8 (Version None)
Quarter: 2011Q3

REPORT INFORMATION
  Report Type: 
  Country: None (occurrence: None)
  Receive Date: 20110805
  Receipt Date: 20100826
  Transmission Date: 20111222
  Serious: No
  Sender: FDA-Public Use
  Company Number: US-ABBOTT-10P-163-0667865-00

PATIENT
  Sex: Male
  Weight: 93.524 kg

DRUGS (2)
  1. NIASPAN [Suspect]
     Indication: DYSLIPIDAEMIA
     Route: 048
     Dates: start: 20100810, end: 20100827
  2. AMOXICILLIN [Suspect]
     Indication: TOOTH EXTRACTION
     Route: 048
     Dates: start: 20100817, end: 20100820

REACTIONS (4)
  - TOOTH EXTRACTION [None]
  - TOOTHACHE [None]
  - RASH [None]
  - PRURITUS GENERALISED [None]
